FAERS Safety Report 21206197 (Version 1)
Quarter: 2022Q3

REPORT INFORMATION
  Report Type: Report from Study
  Country: US (occurrence: US)
  Receive Date: 20220812
  Receipt Date: 20220812
  Transmission Date: 20221027
  Serious: Yes (Hospitalization)
  Sender: FDA-Public Use
  Company Number: US-MYLANLABS-2022M1084791

PATIENT
  Age: 10 Year
  Sex: Female

DRUGS (3)
  1. DOXYCYCLINE [Suspect]
     Active Substance: DOXYCYCLINE
     Indication: Aneurysmal bone cyst
     Dosage: TWO TREATMENTS; FIRST DOSE; DOXYCYCLINE (40 MG/ML IN SODIUM CHLORIDE) WAS MIXED 1:1 WITH 25%...
     Route: 026
  2. SALINE [Concomitant]
     Active Substance: SODIUM CHLORIDE
     Indication: Vehicle solution use
     Dosage: DOXYCYCLINE (40 MG/ML IN SODIUM CHLORIDE) WAS MIXED 1:1 WITH 25% ALBUMIN HUMAN [HUMAN SERUM...
     Route: 026
  3. ALBUMIN HUMAN [Concomitant]
     Active Substance: ALBUMIN HUMAN
     Indication: Product used for unknown indication
     Dosage: DOXYCYCLINE (40 MG/ML IN SODIUM CHLORIDE) WAS MIXED 1:1 WITH 25% ALBUMIN HUMAN [HUMAN SERUM...
     Route: 026

REACTIONS (2)
  - Treatment failure [Unknown]
  - Condition aggravated [Recovered/Resolved]
